FAERS Safety Report 18338455 (Version 5)
Quarter: 2020Q4

REPORT INFORMATION
  Report Type: Report from Study
  Country: US (occurrence: US)
  Receive Date: 20201002
  Receipt Date: 20201209
  Transmission Date: 20210113
  Serious: Yes (Hospitalization, Other)
  Sender: FDA-Public Use
  Company Number: US-GILEAD-2020-0496833

PATIENT
  Age: 40 Year
  Sex: Male

DRUGS (3)
  1. AMBRISENTAN [Suspect]
     Active Substance: AMBRISENTAN
     Indication: PULMONARY HYPERTENSION
     Dosage: 5 MG, QD
     Route: 048
     Dates: start: 20160914
  2. OXBRYTA [Concomitant]
     Active Substance: VOXELOTOR
  3. UPTRAVI [Concomitant]
     Active Substance: SELEXIPAG

REACTIONS (12)
  - Upper respiratory tract infection [Unknown]
  - Fatigue [Unknown]
  - Fluid overload [Unknown]
  - Gastrooesophageal reflux disease [Unknown]
  - Dyspnoea [Unknown]
  - Productive cough [Unknown]
  - Chest pain [Unknown]
  - Nausea [Unknown]
  - Anaemia [Unknown]
  - Seasonal allergy [Not Recovered/Not Resolved]
  - Sickle cell anaemia with crisis [Unknown]
  - Pain in jaw [Unknown]
